FAERS Safety Report 5001036-2 (Version None)
Quarter: 2006Q2

REPORT INFORMATION
  Report Type: 
  Country: None (occurrence: None)
  Receive Date: 20060512
  Receipt Date: 20060324
  Transmission Date: 20061013
  Serious: Yes (Other)
  Sender: FDA-Public Use
  Company Number: FR-GLAXOSMITHKLINE-B0417286A

PATIENT
  Age: 53 Year
  Sex: Male
  Weight: 92 kg

DRUGS (4)
  1. SERETIDE DISKUS [Suspect]
     Indication: ASTHMA
     Dosage: 1PUFF TWICE PER DAY
     Route: 055
     Dates: end: 20060326
  2. CRESTOR [Suspect]
     Indication: HYPERCHOLESTEROLAEMIA
     Dosage: 5MG PER DAY
     Route: 048
     Dates: start: 20050901, end: 20060201
  3. VENTOLIN [Concomitant]
     Indication: ASTHMA
     Dosage: 1PUFF SEE DOSAGE TEXT
     Route: 055
  4. MEPRONIZINE [Concomitant]
     Indication: INSOMNIA
     Dosage: 1TAB PER DAY
     Route: 048
     Dates: start: 19850101

REACTIONS (7)
  - BLOOD CREATINE PHOSPHOKINASE INCREASED [None]
  - BLOOD PRESSURE FLUCTUATION [None]
  - DIZZINESS [None]
  - DRUG INTERACTION [None]
  - HEADACHE [None]
  - MUSCLE SPASMS [None]
  - MYALGIA [None]
